FAERS Safety Report 26144706 (Version 1)
Quarter: 2025Q4

REPORT INFORMATION
  Report Type: Spontaneous
  Country: CA (occurrence: CA)
  Receive Date: 20251211
  Receipt Date: 20251211
  Transmission Date: 20260118
  Serious: No
  Sender: CB FLEET
  Company Number: CA-PRESTIGE-202511-CA-003783

PATIENT
  Sex: Male

DRUGS (1)
  1. DIMETHYL ETHER\PROPANE [Suspect]
     Active Substance: DIMETHYL ETHER\PROPANE
     Indication: Product used for unknown indication
     Dosage: UNKNOWN
     Route: 061

REACTIONS (1)
  - Device catching fire [Unknown]
